FAERS Safety Report 8911863 (Version 1)
Quarter: 2012Q4

REPORT INFORMATION
  Report Type: Spontaneous
  Country: US (occurrence: None)
  Receive Date: 20121113
  Receipt Date: 20121113
  Transmission Date: 20130627
  Serious: Yes (Hospitalization)
  Sender: FDA-Public Use
  Company Number: 2012P1063323

PATIENT
  Age: 87 Year
  Sex: Female
  Weight: 68.04 kg

DRUGS (3)
  1. FENTANYL PATCH 25 MCG/HR (NO PREF. NAME) [Suspect]
     Indication: PAIN
     Route: 062
     Dates: start: 20121103, end: 2012
  2. UNKNOWN PAIN MEDICATION [Concomitant]
  3. INJECTION [Concomitant]

REACTIONS (4)
  - Hypoaesthesia [None]
  - Dizziness [None]
  - Skin warm [None]
  - Device leakage [None]
